FAERS Safety Report 15481525 (Version 2)
Quarter: 2018Q4

REPORT INFORMATION
  Report Type: Spontaneous
  Country: DE (occurrence: DE)
  Receive Date: 20181010
  Receipt Date: 20181126
  Transmission Date: 20190205
  Serious: Yes (Hospitalization, Other)
  Sender: FDA-Public Use
  Company Number: DE-ASTRAZENECA-2018SF28393

PATIENT
  Age: 79 Year
  Sex: Male

DRUGS (5)
  1. DASATINIB. [Suspect]
     Active Substance: DASATINIB
     Indication: CHRONIC MYELOID LEUKAEMIA
     Route: 048
     Dates: start: 20170425, end: 20171106
  2. BRILIQUE [Suspect]
     Active Substance: TICAGRELOR
     Indication: PRODUCT USED FOR UNKNOWN INDICATION
     Route: 048
  3. ACETYLSALICYLIC ACID [Suspect]
     Active Substance: ASPIRIN
     Indication: PRODUCT USED FOR UNKNOWN INDICATION
     Route: 048
  4. DASATINIB. [Suspect]
     Active Substance: DASATINIB
     Indication: CHRONIC MYELOID LEUKAEMIA
     Dosage: 100 MG, QD, 7 DAYS PER WEEK
     Route: 048
     Dates: start: 20180129
  5. IBUPROFEN. [Suspect]
     Active Substance: IBUPROFEN
     Indication: PRODUCT USED FOR UNKNOWN INDICATION
     Dosage: 800.0MG UNKNOWN
     Route: 048

REACTIONS (4)
  - Thrombocytopenia [Recovered/Resolved]
  - Anterior interosseous syndrome [Recovered/Resolved]
  - Mallory-Weiss syndrome [Recovered/Resolved]
  - Compartment syndrome [Recovered/Resolved]

NARRATIVE: CASE EVENT DATE: 20170426
